FAERS Safety Report 13526411 (Version 1)
Quarter: 2017Q2

REPORT INFORMATION
  Report Type: Spontaneous
  Country: FR (occurrence: FR)
  Receive Date: 20170509
  Receipt Date: 20170509
  Transmission Date: 20170830
  Serious: Yes (Other)
  Sender: FDA-Public Use
  Company Number: FR-ORION CORPORATION ORION PHARMA-TREX2017-1360

PATIENT
  Age: 49 Year
  Sex: Female

DRUGS (3)
  1. IMETH [Suspect]
     Active Substance: METHOTREXATE SODIUM
     Indication: PSORIASIS
     Dosage: STRENGTH: 10 MG
     Route: 048
     Dates: start: 20130831, end: 20161001
  2. LEVOTHYROX [Concomitant]
     Active Substance: LEVOTHYROXINE
     Indication: CONGENITAL HYPOTHYROIDISM
     Route: 048
  3. SPECIAFOLDINE [Concomitant]
     Active Substance: FOLIC ACID
     Indication: VITAMIN SUPPLEMENTATION
     Dosage: STRENGTH: 5 MG
     Route: 048
     Dates: start: 20130831, end: 20161001

REACTIONS (2)
  - Treatment failure [Unknown]
  - Superficial spreading melanoma stage unspecified [Recovering/Resolving]

NARRATIVE: CASE EVENT DATE: 201702
